FAERS Safety Report 23415403 (Version 1)
Quarter: 2024Q1

REPORT INFORMATION
  Report Type: Report from Study
  Country: US (occurrence: US)
  Receive Date: 20240118
  Receipt Date: 20240118
  Transmission Date: 20240410
  Serious: Yes (Hospitalization)
  Sender: FDA-Public Use
  Company Number: US-ASTELLAS-2024EU000449

PATIENT
  Sex: Male

DRUGS (1)
  1. ENZALUTAMIDE [Suspect]
     Active Substance: ENZALUTAMIDE
     Indication: Prostate cancer
     Route: 048

REACTIONS (5)
  - Weight increased [Unknown]
  - Dyspnoea exertional [Unknown]
  - Back pain [Unknown]
  - Fatigue [Unknown]
  - Headache [Unknown]
